FAERS Safety Report 10985133 (Version 1)
Quarter: 2015Q2

REPORT INFORMATION
  Report Type: Spontaneous
  Country: US (occurrence: None)
  Receive Date: 20150403
  Receipt Date: 20150403
  Transmission Date: 20150821
  Serious: Yes (Other)
  Sender: FDA-Public Use
  Company Number: None

PATIENT
  Sex: Female

DRUGS (2)
  1. KEPPRA XR [Suspect]
     Active Substance: LEVETIRACETAM
     Indication: CEREBRAL PALSY
     Dosage: 4
     Route: 048
     Dates: start: 2011
  2. KEPPRA XR [Suspect]
     Active Substance: LEVETIRACETAM
     Indication: EPILEPSY
     Dosage: 4
     Route: 048
     Dates: start: 2011

REACTIONS (2)
  - Seizure [None]
  - Dizziness [None]

NARRATIVE: CASE EVENT DATE: 2011
